FAERS Safety Report 15845298 (Version 1)
Quarter: 2019Q1

REPORT INFORMATION
  Report Type: Spontaneous
  Country: CN (occurrence: CN)
  Receive Date: 20190119
  Receipt Date: 20190119
  Transmission Date: 20190417
  Serious: Yes (Other)
  Sender: FDA-Public Use
  Company Number: CN-ACCORD-098831

PATIENT
  Age: 69 Year
  Sex: Female

DRUGS (2)
  1. ETOPOSIDE. [Suspect]
     Active Substance: ETOPOSIDE
     Indication: LARGE CELL LUNG CANCER
     Dosage: 4 CYCLE
  2. CISPLATIN. [Suspect]
     Active Substance: CISPLATIN
     Indication: LARGE CELL LUNG CANCER
     Dosage: 4 CYCLE

REACTIONS (3)
  - Performance status decreased [Unknown]
  - Drug intolerance [Unknown]
  - Bone marrow failure [Unknown]
